FAERS Safety Report 21029447 (Version 2)
Quarter: 2022Q4

REPORT INFORMATION
  Report Type: Report from Study
  Country: JP (occurrence: JP)
  Receive Date: 20220630
  Receipt Date: 20221027
  Transmission Date: 20230112
  Serious: No
  Sender: FDA-Public Use
  Company Number: JP-MSD-LAG010011-005

PATIENT
  Age: 65 Year
  Sex: Male
  Weight: 82 kg

DRUGS (6)
  1. MOLNUPIRAVIR [Suspect]
     Active Substance: MOLNUPIRAVIR
     Indication: COVID-19 treatment
     Dosage: 800 MILLIGRAM, ONCE
     Route: 048
     Dates: start: 20220125, end: 20220125
  2. MOLNUPIRAVIR [Suspect]
     Active Substance: MOLNUPIRAVIR
     Dosage: 800 MILLIGRAM, BID
     Route: 048
     Dates: start: 20220126, end: 20220129
  3. MOLNUPIRAVIR [Suspect]
     Active Substance: MOLNUPIRAVIR
     Dosage: 800 MILLIGRAM, ONCE
     Route: 048
     Dates: start: 20220130, end: 20220130
  4. CALONAL [Suspect]
     Active Substance: ACETAMINOPHEN
     Indication: COVID-19 treatment
     Route: 065
  5. DEXTROMETHORPHAN HYDROBROMIDE [Suspect]
     Active Substance: DEXTROMETHORPHAN HYDROBROMIDE
     Indication: COVID-19 treatment
     Route: 065
  6. HERBALS [Suspect]
     Active Substance: HERBALS
     Indication: COVID-19 treatment
     Route: 048

REACTIONS (3)
  - Rash [Recovered/Resolved]
  - Headache [Recovering/Resolving]
  - Product use issue [Unknown]

NARRATIVE: CASE EVENT DATE: 20220125
